FAERS Safety Report 15133331 (Version 1)
Quarter: 2018Q3

REPORT INFORMATION
  Report Type: Spontaneous
  Country: US (occurrence: US)
  Receive Date: 20180615
  Receipt Date: 20180615
  Transmission Date: 20181010
  Serious: Yes (Disabling)
  Sender: FDA-Public Use
  Company Number: None

PATIENT
  Age: 60 Year
  Sex: Male
  Weight: 103.05 kg

DRUGS (2)
  1. GLYXAMBI [Suspect]
     Active Substance: EMPAGLIFLOZIN\LINAGLIPTIN
     Indication: DIABETES MELLITUS
     Route: 048
     Dates: start: 20180405, end: 20180613
  2. TOUJEO [Concomitant]
     Active Substance: INSULIN GLARGINE
     Dates: start: 20180201, end: 20180615

REACTIONS (1)
  - Toe amputation [None]

NARRATIVE: CASE EVENT DATE: 20180613
